FAERS Safety Report 14079470 (Version 11)
Quarter: 2021Q1

REPORT INFORMATION
  Report Type: Spontaneous
  Country: US (occurrence: US)
  Receive Date: 20171012
  Receipt Date: 20210303
  Transmission Date: 20210419
  Serious: Yes (Hospitalization, Other)
  Sender: FDA-Public Use
  Company Number: US-PFIZER INC-2017438795

PATIENT
  Age: 64 Year
  Sex: Female

DRUGS (5)
  1. XELJANZ [Suspect]
     Active Substance: TOFACITINIB CITRATE
     Dosage: 5 MG, 2X/DAY
     Route: 048
     Dates: start: 20160326, end: 2016
  2. XELJANZ [Suspect]
     Active Substance: TOFACITINIB CITRATE
     Indication: RHEUMATOID ARTHRITIS
     Dosage: 5 MG, TWICE DAILY
     Route: 048
     Dates: start: 20160322, end: 201603
  3. XELJANZ [Suspect]
     Active Substance: TOFACITINIB CITRATE
     Dosage: 5 MG, 2X/DAY
     Route: 048
     Dates: start: 20190525
  4. XELJANZ [Suspect]
     Active Substance: TOFACITINIB CITRATE
     Dosage: 5 MG, TWICE DAILY
     Route: 048
     Dates: start: 20161123
  5. XELJANZ [Suspect]
     Active Substance: TOFACITINIB CITRATE
     Dosage: 5 MG, TWICE DAILY
     Route: 048
     Dates: start: 20160324, end: 201603

REACTIONS (22)
  - Illness [Unknown]
  - Femur fracture [Unknown]
  - Ear injury [Unknown]
  - Muscle spasms [Unknown]
  - Product dose omission issue [Unknown]
  - Burning sensation [Unknown]
  - Cardiac disorder [Unknown]
  - Fall [Unknown]
  - Dizziness [Unknown]
  - Blood urine present [Unknown]
  - Decreased appetite [Unknown]
  - Bladder cancer [Unknown]
  - Weight decreased [Unknown]
  - Toothache [Unknown]
  - Lung disorder [Unknown]
  - Diarrhoea [Unknown]
  - Foot fracture [Unknown]
  - Condition aggravated [Unknown]
  - Rib fracture [Unknown]
  - Dental caries [Unknown]
  - Tooth fracture [Unknown]
  - Epistaxis [Unknown]

NARRATIVE: CASE EVENT DATE: 2017
